FAERS Safety Report 7901136-0 (Version None)
Quarter: 2011Q4

REPORT INFORMATION
  Report Type: 
  Country: None (occurrence: None)
  Receive Date: 20111108
  Receipt Date: 20111102
  Transmission Date: 20120403
  Serious: Yes (Other)
  Sender: FDA-Public Use
  Company Number: US-PFIZER INC-2011225092

PATIENT
  Sex: Female
  Weight: 110 kg

DRUGS (4)
  1. REVATIO [Suspect]
     Indication: PULMONARY HYPERTENSION
     Dosage: 20 MG, 3X/DAY
     Route: 048
     Dates: start: 20080101
  2. REVATIO [Interacting]
     Dosage: UNK
     Dates: start: 20110701
  3. NIACIN [Interacting]
     Indication: VITAMIN SUPPLEMENTATION
     Dosage: 500 MG, DAILY
     Dates: start: 20110101, end: 20110101
  4. DIOVAN [Concomitant]
     Indication: HYPERTENSION
     Dosage: UNK, DAILY
     Route: 048

REACTIONS (10)
  - SWELLING [None]
  - OBSTRUCTIVE AIRWAYS DISORDER [None]
  - GAIT DISTURBANCE [None]
  - HYPERTENSION [None]
  - DRUG INTERACTION [None]
  - ANAPHYLACTIC REACTION [None]
  - OEDEMA [None]
  - DYSPNOEA [None]
  - NAUSEA [None]
  - HYPERHIDROSIS [None]
